FAERS Safety Report 4765901-3 (Version None)
Quarter: 2005Q3

REPORT INFORMATION
  Report Type: 
  Country: None (occurrence: None)
  Receive Date: 20050912
  Receipt Date: 20050715
  Transmission Date: 20060218
  Serious: Yes (Hospitalization)
  Sender: FDA-Public Use
  Company Number: 200516439GDDC

PATIENT
  Age: 58 Year
  Sex: Male
  Weight: 49 kg

DRUGS (2)
  1. RIFADIN [Suspect]
     Indication: ENDOCARDITIS
     Route: 048
     Dates: start: 20050511, end: 20050523
  2. CEFTRIAXZONE [Suspect]
     Dosage: DOSE: 4 GM (2 GM)
     Route: 042
     Dates: start: 20050429, end: 20050523

REACTIONS (6)
  - BACK PAIN [None]
  - DRUG INEFFECTIVE [None]
  - ENDOCARDITIS [None]
  - PANCYTOPENIA [None]
  - PRURIGO [None]
  - PYREXIA [None]
